FAERS Safety Report 9907600 (Version 1)
Quarter: 2014Q1

REPORT INFORMATION
  Report Type: Report from Study
  Country: US (occurrence: US)
  Receive Date: 20140219
  Receipt Date: 20140219
  Transmission Date: 20141002
  Serious: Yes (Other)
  Sender: FDA-Public Use
  Company Number: US-ROCHE-1332224

PATIENT
  Age: 79 Year
  Sex: Male

DRUGS (10)
  1. LUCENTIS [Suspect]
     Indication: AGE-RELATED MACULAR DEGENERATION
     Route: 050
  2. AVASTIN [Suspect]
     Indication: PRODUCT USED FOR UNKNOWN INDICATION
     Route: 065
  3. TOBRADEX [Concomitant]
     Dosage: 0.3-0.1%
     Route: 047
  4. AZASITE [Concomitant]
     Route: 047
  5. NEVANAC [Concomitant]
     Route: 047
  6. PRED FORTE [Concomitant]
     Route: 047
  7. ACULAR [Concomitant]
     Route: 047
  8. XIBROM [Concomitant]
     Route: 047
  9. LUMIGAN [Concomitant]
  10. XALATAN [Concomitant]
     Route: 047

REACTIONS (14)
  - Blepharitis [Unknown]
  - Conjunctival hyperaemia [Unknown]
  - Posterior lens capsulotomy [Unknown]
  - Conjunctival disorder [Unknown]
  - Iris atrophy [Unknown]
  - Pupillary disorder [Unknown]
  - Intraocular lens implant [Unknown]
  - Lacrimation increased [Unknown]
  - Foreign body sensation in eyes [Unknown]
  - Cataract [Unknown]
  - Retinal tear [Unknown]
  - Drug ineffective [Unknown]
  - Open angle glaucoma [Unknown]
  - Eyelids pruritus [Unknown]
